FAERS Safety Report 6996935-6 (Version None)
Quarter: 2010Q3

REPORT INFORMATION
  Report Type: 
  Country: None (occurrence: None)
  Receive Date: 20100918
  Receipt Date: 20090824
  Transmission Date: 20110219
  Serious: Yes (Other)
  Sender: FDA-Public Use
  Company Number: US-WYE-H10702909

PATIENT
  Age: 56 Year
  Sex: Female

DRUGS (4)
  1. EFFEXOR XR [Suspect]
     Indication: DEPRESSION
     Route: 048
     Dates: start: 20070101, end: 20090801
  2. EFFEXOR XR [Suspect]
     Route: 048
     Dates: start: 20090801, end: 20090801
  3. EFFEXOR XR [Suspect]
     Dosage: PRESENTLY TAPERING OFF
     Route: 048
     Dates: start: 20090801
  4. AMBIEN [Concomitant]
     Dosage: UNKNOWN DOSE AS NEEDED
     Route: 048

REACTIONS (5)
  - BLOOD PRESSURE INCREASED [None]
  - DIZZINESS [None]
  - DRUG WITHDRAWAL SYNDROME [None]
  - MUSCLE SPASMS [None]
  - PAIN [None]
